FAERS Safety Report 6698494-4 (Version None)
Quarter: 2010Q2

REPORT INFORMATION
  Report Type: 
  Country: None (occurrence: None)
  Receive Date: 20100426
  Receipt Date: 20100426
  Transmission Date: 20101027
  Serious: No
  Sender: FDA-Public Use
  Company Number: None

PATIENT
  Age: 2 Year
  Sex: Female

DRUGS (1)
  1. CEFUROXIME [Suspect]
     Indication: OTITIS MEDIA
     Dosage: 3.8 ML BID PO
     Route: 048

REACTIONS (3)
  - EYE SWELLING [None]
  - PRURITUS [None]
  - RASH GENERALISED [None]
